FAERS Safety Report 9571205 (Version 1)
Quarter: 2013Q3

REPORT INFORMATION
  Report Type: Spontaneous
  Country: US (occurrence: None)
  Receive Date: 20130927
  Receipt Date: 20130927
  Transmission Date: 20140515
  Serious: Yes (Hospitalization, Disabling)
  Sender: FDA-Public Use
  Company Number: None

PATIENT
  Age: 86 Year
  Sex: Female
  Weight: 61.24 kg

DRUGS (1)
  1. ABILIFY [Suspect]
     Indication: MENTAL DISORDER
     Dosage: ONE PILL TWICE DAILY TAKEN BY MOUTH

REACTIONS (3)
  - Loss of consciousness [None]
  - Abnormal behaviour [None]
  - Memory impairment [None]
